FAERS Safety Report 5194832-2 (Version None)
Quarter: 2006Q4

REPORT INFORMATION
  Report Type: 
  Country: None (occurrence: None)
  Receive Date: 20061227
  Receipt Date: 20061212
  Transmission Date: 20070319
  Serious: Yes (Hospitalization)
  Sender: FDA-Public Use
  Company Number: US019026

PATIENT
  Age: 49 Year
  Sex: Female

DRUGS (1)
  1. PROVIGIL [Suspect]
     Indication: SLEEP DISORDER
     Dosage: NI
     Dates: start: 20061103

REACTIONS (1)
  - TOXIC EPIDERMAL NECROLYSIS [None]
